FAERS Safety Report 4933140-9 (Version None)
Quarter: 2006Q1

REPORT INFORMATION
  Report Type: 
  Country: None (occurrence: None)
  Receive Date: 20060301
  Receipt Date: 20060301
  Transmission Date: 20060701
  Serious: Yes (Hospitalization)
  Sender: FDA-Public Use
  Company Number: None

PATIENT
  Age: 37 Year
  Sex: Male
  Weight: 74.3899 kg

DRUGS (2)
  1. FOSPHENYTOIN SODIUM [Suspect]
     Indication: CONVULSION
     Dosage: 1000MG ONCE IV
     Route: 042
     Dates: start: 20060125, end: 20060125
  2. PHENYTOIN [Suspect]
     Dosage: 1000MG ONCE IV
     Route: 042
     Dates: start: 20060125, end: 20060125

REACTIONS (4)
  - CONVULSION [None]
  - HYPOGLYCAEMIA [None]
  - LOCAL SWELLING [None]
  - LOSS OF CONSCIOUSNESS [None]
